FAERS Safety Report 13425397 (Version 1)
Quarter: 2017Q2

REPORT INFORMATION
  Report Type: Spontaneous
  Country: DE (occurrence: DE)
  Receive Date: 20170411
  Receipt Date: 20170411
  Transmission Date: 20170830
  Serious: Yes (Hospitalization)
  Sender: FDA-Public Use
  Company Number: DE-ORION CORPORATION ORION PHARMA-ENT 2017-0061

PATIENT
  Age: 71 Year
  Sex: Male

DRUGS (7)
  1. ENTACAPONE. [Suspect]
     Active Substance: ENTACAPONE
     Route: 065
  2. AMANTADINE. [Suspect]
     Active Substance: AMANTADINE HYDROCHLORIDE
     Indication: PARKINSON^S DISEASE
     Route: 042
  3. ROTIGOTINE [Concomitant]
     Active Substance: ROTIGOTINE
     Route: 062
  4. RASAGILINE. [Suspect]
     Active Substance: RASAGILINE
     Indication: PARKINSON^S DISEASE
     Route: 065
  5. L DOPA [Concomitant]
     Active Substance: LEVODOPA
     Route: 048
  6. L DOPA [Concomitant]
     Active Substance: LEVODOPA
     Route: 048
  7. ENTACAPONE. [Suspect]
     Active Substance: ENTACAPONE
     Indication: PARKINSON^S DISEASE
     Route: 065

REACTIONS (12)
  - Gait disturbance [Recovering/Resolving]
  - Dysphagia [Recovering/Resolving]
  - Hallucination, visual [Recovering/Resolving]
  - Confusional state [Recovering/Resolving]
  - Fall [Recovering/Resolving]
  - Bradykinesia [Recovering/Resolving]
  - Somnolence [Recovering/Resolving]
  - Psychomotor hyperactivity [Recovering/Resolving]
  - Delirium [Recovering/Resolving]
  - Amnesia [Recovering/Resolving]
  - Dyskinesia [Recovering/Resolving]
  - Substance-induced psychotic disorder [Recovering/Resolving]
